FAERS Safety Report 7515823-X (Version None)
Quarter: 2011Q2

REPORT INFORMATION
  Report Type: 
  Country: None (occurrence: None)
  Receive Date: 20110601
  Receipt Date: 20110523
  Transmission Date: 20111010
  Serious: Yes (Hospitalization)
  Sender: FDA-Public Use
  Company Number: US-MUTUAL PHARMACEUTICAL COMPANY, INC.-CLCY20110063

PATIENT
  Sex: Male
  Weight: 64.468 kg

DRUGS (5)
  1. ENALAPRIL MALEATE [Concomitant]
     Indication: PRODUCT USED FOR UNKNOWN INDICATION
     Route: 048
  2. LIPITOR [Concomitant]
     Indication: BLOOD CHOLESTEROL INCREASED
     Route: 048
     Dates: end: 20110518
  3. COLCRYS [Suspect]
     Indication: GOUT
     Route: 048
     Dates: start: 20100801, end: 20110519
  4. ULORIC [Concomitant]
     Indication: PRODUCT USED FOR UNKNOWN INDICATION
     Route: 048
  5. METOPROLOL TARTRATE [Concomitant]
     Indication: PRODUCT USED FOR UNKNOWN INDICATION
     Route: 048

REACTIONS (11)
  - OESOPHAGEAL ULCER [None]
  - GASTROINTESTINAL OEDEMA [None]
  - LARGE INTESTINAL ULCER [None]
  - PHARYNGEAL ULCERATION [None]
  - MOUTH ULCERATION [None]
  - ANAEMIA [None]
  - WEIGHT DECREASED [None]
  - GASTRIC ULCER [None]
  - WHITE BLOOD CELL COUNT DECREASED [None]
  - ABSCESS INTESTINAL [None]
  - DIARRHOEA [None]
